FAERS Safety Report 6203369-0 (Version None)
Quarter: 2009Q2

REPORT INFORMATION
  Report Type: 
  Country: None (occurrence: None)
  Receive Date: 20090527
  Receipt Date: 20090515
  Transmission Date: 20091009
  Serious: Yes (Hospitalization, Other)
  Sender: FDA-Public Use
  Company Number: FR-AMGEN-US348159

PATIENT
  Sex: Female
  Weight: 78 kg

DRUGS (11)
  1. ENBREL [Suspect]
     Indication: RHEUMATOID ARTHRITIS
     Route: 058
     Dates: start: 20050809, end: 20070201
  2. MABTHERA [Suspect]
     Indication: RHEUMATOID ARTHRITIS
     Route: 042
     Dates: start: 20070720, end: 20070720
  3. MABTHERA [Suspect]
     Route: 042
     Dates: start: 20070817, end: 20070817
  4. MABTHERA [Suspect]
     Route: 042
     Dates: start: 20080222, end: 20080222
  5. MABTHERA [Suspect]
     Route: 042
     Dates: start: 20080306, end: 20080306
  6. MABTHERA [Suspect]
     Route: 042
     Dates: start: 20081008, end: 20081008
  7. MABTHERA [Suspect]
     Route: 042
     Dates: start: 20081023, end: 20081023
  8. REMICADE [Suspect]
     Indication: RHEUMATOID ARTHRITIS
     Route: 042
     Dates: start: 20050101, end: 20050801
  9. HUMIRA [Suspect]
     Indication: RHEUMATOID ARTHRITIS
     Route: 042
     Dates: start: 20070215, end: 20070501
  10. SALAZOPYRINE [Concomitant]
     Indication: RHEUMATOID ARTHRITIS
     Route: 048
     Dates: start: 20070801
  11. SOLU-MEDROL [Concomitant]
     Indication: RHEUMATOID ARTHRITIS
     Dosage: BOLUS OF 15 MG/KG

REACTIONS (6)
  - BREAST CANCER [None]
  - CYSTOSARCOMA PHYLLODES [None]
  - CYTOLYTIC HEPATITIS [None]
  - DRUG INEFFECTIVE [None]
  - HEPATITIS CHOLESTATIC [None]
  - PRURITUS [None]
